FAERS Safety Report 21411803 (Version 12)
Quarter: 2025Q2

REPORT INFORMATION
  Report Type: Spontaneous
  Country: CA (occurrence: CA)
  Receive Date: 20221005
  Receipt Date: 20250630
  Transmission Date: 20250717
  Serious: Yes (Death, Hospitalization, Other)
  Sender: MYLAN
  Company Number: CA-MYLANLABS-2022M1110802

PATIENT
  Age: 54 Year
  Sex: Male

DRUGS (74)
  1. VALPROIC ACID [Interacting]
     Active Substance: VALPROIC ACID
     Indication: Bipolar disorder
  2. VALPROIC ACID [Interacting]
     Active Substance: VALPROIC ACID
     Indication: Mental disorder
  3. CELECOXIB [Interacting]
     Active Substance: CELECOXIB
     Indication: Psychotic disorder
  4. SERTRALINE [Interacting]
     Active Substance: SERTRALINE HYDROCHLORIDE
     Indication: Bipolar disorder
  5. SERTRALINE [Interacting]
     Active Substance: SERTRALINE HYDROCHLORIDE
     Indication: Mental disorder
  6. QUETIAPINE [Interacting]
     Active Substance: QUETIAPINE
     Indication: Bipolar disorder
  7. QUETIAPINE [Interacting]
     Active Substance: QUETIAPINE
     Indication: Depression
  8. VALPROIC ACID [Interacting]
     Active Substance: VALPROIC ACID
     Indication: Product used for unknown indication
  9. BUPROPION [Interacting]
     Active Substance: BUPROPION
     Indication: Depression
  10. BUPROPION [Interacting]
     Active Substance: BUPROPION
     Indication: Mental disorder
  11. BUPROPION [Interacting]
     Active Substance: BUPROPION
     Indication: Bipolar disorder
  12. TENOFOVIR [Interacting]
     Active Substance: TENOFOVIR
     Indication: Product used for unknown indication
  13. CITALOPRAM [Interacting]
     Active Substance: CITALOPRAM
     Indication: Psychotic disorder
  14. CITALOPRAM [Interacting]
     Active Substance: CITALOPRAM
     Indication: Mental disorder
  15. CLONAZEPAM [Interacting]
     Active Substance: CLONAZEPAM
     Indication: Depression
  16. CLONAZEPAM [Interacting]
     Active Substance: CLONAZEPAM
     Indication: Bipolar disorder
  17. CLONAZEPAM [Interacting]
     Active Substance: CLONAZEPAM
     Indication: Psychotic disorder
  18. CLONAZEPAM [Interacting]
     Active Substance: CLONAZEPAM
     Indication: Mental disorder
  19. ISENTRESS [Interacting]
     Active Substance: RALTEGRAVIR POTASSIUM
     Indication: HIV infection
     Dosage: 400 MILLIGRAM, BID (1 EVERY 12 HOURS)
  20. ISENTRESS [Interacting]
     Active Substance: RALTEGRAVIR POTASSIUM
     Dosage: 800 MILLIGRAM, QD
  21. RISPERIDONE [Interacting]
     Active Substance: RISPERIDONE
     Indication: Depression
  22. RITONAVIR [Interacting]
     Active Substance: RITONAVIR
     Indication: Depression
  23. RITONAVIR [Interacting]
     Active Substance: RITONAVIR
     Indication: HIV infection
  24. ENFUVIRTIDE [Interacting]
     Active Substance: ENFUVIRTIDE
     Indication: HIV infection
  25. ENFUVIRTIDE [Interacting]
     Active Substance: ENFUVIRTIDE
     Indication: Product used for unknown indication
  26. RALTEGRAVIR POTASSIUM [Interacting]
     Active Substance: RALTEGRAVIR POTASSIUM
     Indication: HIV infection
     Dosage: 400 MILLIGRAM, BID (400 MG Q12H)
     Dates: start: 20070620
  27. RALTEGRAVIR POTASSIUM [Interacting]
     Active Substance: RALTEGRAVIR POTASSIUM
     Dosage: 800 MILLIGRAM, QD
  28. RALTEGRAVIR POTASSIUM [Interacting]
     Active Substance: RALTEGRAVIR POTASSIUM
     Dosage: 400 MILLIGRAM, BID (400 MG 1 EVERY 12 HOURS)
  29. RALTEGRAVIR POTASSIUM [Interacting]
     Active Substance: RALTEGRAVIR POTASSIUM
     Dosage: 400 MILLIGRAM, BID (400 MG 1 EVERY 12 HOURS)
  30. RALTEGRAVIR POTASSIUM [Interacting]
     Active Substance: RALTEGRAVIR POTASSIUM
     Dosage: 400 MILLILITER, QD (1 EVERY 1 DAY)
  31. ATAZANAVIR [Interacting]
     Active Substance: ATAZANAVIR
     Indication: HIV infection
  32. ATAZANAVIR [Interacting]
     Active Substance: ATAZANAVIR
  33. ATAZANAVIR [Interacting]
     Active Substance: ATAZANAVIR
  34. ATAZANAVIR [Interacting]
     Active Substance: ATAZANAVIR
  35. ATAZANAVIR [Interacting]
     Active Substance: ATAZANAVIR
  36. ZOPICLONE [Interacting]
     Active Substance: ZOPICLONE
     Indication: Bipolar disorder
  37. ZOPICLONE [Interacting]
     Active Substance: ZOPICLONE
     Indication: Depression
  38. ZOPICLONE [Interacting]
     Active Substance: ZOPICLONE
     Indication: Mental disorder
  39. ZOPICLONE [Interacting]
     Active Substance: ZOPICLONE
  40. ZOPICLONE [Interacting]
     Active Substance: ZOPICLONE
  41. POTASSIUM [Suspect]
     Active Substance: POTASSIUM
     Indication: HIV infection
     Dosage: 800 MILLIGRAM, QD
  42. CITALOPRAM HYDROBROMIDE [Suspect]
     Active Substance: CITALOPRAM HYDROBROMIDE
     Indication: Psychotic disorder
  43. LOPINAVIR\RITONAVIR [Interacting]
     Active Substance: LOPINAVIR\RITONAVIR
     Indication: HIV infection
  44. LOPINAVIR\RITONAVIR [Interacting]
     Active Substance: LOPINAVIR\RITONAVIR
  45. LAMIVUDINE [Interacting]
     Active Substance: LAMIVUDINE
     Indication: HIV infection
  46. LAMIVUDINE [Interacting]
     Active Substance: LAMIVUDINE
  47. LAMIVUDINE [Interacting]
     Active Substance: LAMIVUDINE
  48. LAMIVUDINE [Interacting]
     Active Substance: LAMIVUDINE
  49. LAMIVUDINE [Interacting]
     Active Substance: LAMIVUDINE
  50. EFAVIRENZ [Interacting]
     Active Substance: EFAVIRENZ
     Indication: HIV infection
  51. EFAVIRENZ [Interacting]
     Active Substance: EFAVIRENZ
     Dosage: 800 MILLIGRAM, QD
  52. EFAVIRENZ [Interacting]
     Active Substance: EFAVIRENZ
  53. EFAVIRENZ [Interacting]
     Active Substance: EFAVIRENZ
  54. VIREAD [Suspect]
     Active Substance: TENOFOVIR DISOPROXIL FUMARATE
     Indication: Product used for unknown indication
  55. NORVIR [Interacting]
     Active Substance: RITONAVIR
     Indication: HIV infection
  56. VALPROATE SODIUM [Suspect]
     Active Substance: VALPROATE SODIUM
     Indication: Bipolar disorder
  57. SUSTIVA [Suspect]
     Active Substance: EFAVIRENZ
     Indication: HIV infection
     Dosage: 400 MILLIGRAM, BID (1 EVERY 12 HOURS)
  58. SUSTIVA [Suspect]
     Active Substance: EFAVIRENZ
     Dosage: 400 MILLIGRAM, BID (1 EVERY 12 HOURS)
  59. RIVOTRIL [Suspect]
     Active Substance: CLONAZEPAM
     Indication: Bipolar disorder
  60. QUETIAPINE FUMARATE [Suspect]
     Active Substance: QUETIAPINE FUMARATE
     Indication: Mental disorder
  61. QUETIAPINE FUMARATE [Suspect]
     Active Substance: QUETIAPINE FUMARATE
     Indication: Depression
  62. QUETIAPINE FUMARATE [Suspect]
     Active Substance: QUETIAPINE FUMARATE
     Indication: Bipolar disorder
  63. QUETIAPINE FUMARATE [Suspect]
     Active Substance: QUETIAPINE FUMARATE
  64. KALETRA [Suspect]
     Active Substance: LOPINAVIR\RITONAVIR
     Indication: HIV infection
  65. KALETRA [Suspect]
     Active Substance: LOPINAVIR\RITONAVIR
  66. KALETRA [Suspect]
     Active Substance: LOPINAVIR\RITONAVIR
  67. KALETRA [Suspect]
     Active Substance: LOPINAVIR\RITONAVIR
  68. ENFUVIRTIDE [Concomitant]
     Active Substance: ENFUVIRTIDE
     Indication: HIV infection
  69. ENFUVIRTIDE [Concomitant]
     Active Substance: ENFUVIRTIDE
  70. ENFUVIRTIDE [Concomitant]
     Active Substance: ENFUVIRTIDE
  71. EMTRIVA [Concomitant]
     Active Substance: EMTRICITABINE
     Indication: Product used for unknown indication
  72. ATAZANAVIR SULFATE [Concomitant]
     Active Substance: ATAZANAVIR SULFATE
     Indication: HIV infection
  73. ATAZANAVIR [Concomitant]
     Active Substance: ATAZANAVIR
     Indication: HIV infection
  74. TENOFOVIR [Concomitant]
     Active Substance: TENOFOVIR

REACTIONS (15)
  - Paranoia [Fatal]
  - Psychiatric decompensation [Fatal]
  - Psychotic disorder [Fatal]
  - Tearfulness [Fatal]
  - Anxiety [Fatal]
  - Suicidal ideation [Fatal]
  - Psychomotor skills impaired [Fatal]
  - Depression suicidal [Fatal]
  - Depressive symptom [Fatal]
  - Product use in unapproved indication [Fatal]
  - Drug interaction [Fatal]
  - Depression [Fatal]
  - Loss of personal independence in daily activities [Fatal]
  - Intentional product use issue [Fatal]
  - Prescribed overdose [Fatal]
